FAERS Safety Report 8910531 (Version 3)
Quarter: 2013Q2

REPORT INFORMATION
  Report Type: Spontaneous
  Country: US (occurrence: US)
  Receive Date: 20121114
  Receipt Date: 20130509
  Transmission Date: 20140414
  Serious: No
  Sender: FDA-Public Use
  Company Number: US-ASTRAZENECA-2012SE80962

PATIENT
  Age: 48 Year
  Sex: Male

DRUGS (15)
  1. SEROQUEL [Suspect]
     Indication: BIPOLAR DISORDER
     Route: 048
  2. SEROQUEL [Suspect]
     Indication: SLEEP DISORDER
     Route: 048
  3. SEROQUEL [Suspect]
     Indication: BIPOLAR DISORDER
     Route: 048
  4. SEROQUEL [Suspect]
     Indication: SLEEP DISORDER
     Route: 048
  5. SEROQUEL [Suspect]
     Indication: BIPOLAR DISORDER
     Route: 048
  6. SEROQUEL [Suspect]
     Indication: SLEEP DISORDER
     Route: 048
  7. SEROQUEL [Suspect]
     Indication: BIPOLAR DISORDER
     Route: 048
  8. SEROQUEL [Suspect]
     Indication: SLEEP DISORDER
     Route: 048
  9. SEROQUEL [Suspect]
     Indication: BIPOLAR DISORDER
     Route: 048
  10. SEROQUEL [Suspect]
     Indication: SLEEP DISORDER
     Route: 048
  11. SEROQUEL [Suspect]
     Indication: BIPOLAR DISORDER
     Route: 048
  12. SEROQUEL [Suspect]
     Indication: SLEEP DISORDER
     Route: 048
  13. NEXIUM [Suspect]
     Route: 048
  14. XANAX [Concomitant]
     Indication: NERVOUSNESS
     Route: 048
  15. WELLBUTRIN [Concomitant]
     Indication: NERVOUSNESS
     Route: 048

REACTIONS (13)
  - Insomnia [Unknown]
  - Mental disorder [Unknown]
  - Impaired work ability [Unknown]
  - Fall [Unknown]
  - Tachyphrenia [Unknown]
  - Sedation [Unknown]
  - Retching [Unknown]
  - Dyspepsia [Unknown]
  - Adverse event [Unknown]
  - Withdrawal syndrome [Unknown]
  - Cognitive disorder [Unknown]
  - Drug effect incomplete [Unknown]
  - Drug dose omission [Unknown]
